FAERS Safety Report 5164449-4 (Version None)
Quarter: 2006Q4

REPORT INFORMATION
  Report Type: 
  Country: None (occurrence: None)
  Receive Date: 20061205
  Receipt Date: 20041018
  Transmission Date: 20070319
  Serious: Yes (Death, Life-Threatening, Hospitalization)
  Sender: FDA-Public Use
  Company Number: PL-ROCHE-383789

PATIENT
  Age: 57 Year
  Sex: Male
  Weight: 85 kg

DRUGS (14)
  1. CYMEVENE [Suspect]
     Route: 042
     Dates: start: 20041015, end: 20041015
  2. PROGRAF [Concomitant]
     Indication: TRANSPLANT REJECTION
     Dosage: DOSE REPORTED AS 4MG - 0MG - 3MG
     Route: 048
     Dates: start: 20030827
  3. IMURAN [Concomitant]
     Indication: TRANSPLANT REJECTION
     Route: 048
     Dates: start: 20030409, end: 20041015
  4. SOLU-MEDROL [Concomitant]
     Indication: TRANSPLANT REJECTION
     Dosage: GIVEN AS PULSE THERAPY OF 3 X 0.5MG
     Route: 042
     Dates: start: 20041013, end: 20041015
  5. CELLCEPT [Concomitant]
     Dosage: DISCONTINUED 1 OR 2 DAYS BEFORE RECEIVING GANCICLOVIR
     Dates: start: 20030827, end: 20041015
  6. ENCORTON [Concomitant]
     Dosage: DOSE REPORTED AS 1 X 10MG. TREATMENT WITHDRAWN DUE TO POST-TRANSPLANT DIABETES MELLITUS
     Dates: start: 20030414, end: 20041012
  7. METOCARD [Concomitant]
     Dosage: DOSE REPORTED AS 2 X 25MG, LONG LASTING TREATMENT
  8. AMLOZEK [Concomitant]
     Dosage: DOSE REPORTED AS  1 X 10MG LONG LASTING TREATMENT
  9. POLPRESSIN [Concomitant]
     Dosage: DOSE REPORTED A 3 X 5MG LONG LASTING TREATMENT
  10. GOPTEN [Concomitant]
     Dosage: DOSE REPORTED AS 1 X 2MG LONG LASTING TREATMENT
  11. FUROSEMIDE [Concomitant]
     Dosage: DOSE REPORTED AS 1 - 1 - 0 TBLET LONG LASTING TREATMENT
  12. ZOCOR [Concomitant]
     Dosage: DOSE REPORTED A 1 X 200MG LONG LASTING TREATMENT
  13. LOSEC [Concomitant]
     Dosage: DOSE REPORTED AS 2 X 20MG
     Dates: start: 20041014
  14. NEORAL [Concomitant]

REACTIONS (41)
  - ANXIETY [None]
  - ARTERIOVENOUS FISTULA OPERATION [None]
  - BLOOD CALCIUM DECREASED [None]
  - BLOOD CHLORIDE DECREASED [None]
  - BLOOD IRON DECREASED [None]
  - BLOOD MAGNESIUM INCREASED [None]
  - BLOOD PHOSPHORUS INCREASED [None]
  - BLOOD POTASSIUM INCREASED [None]
  - BONE MARROW FAILURE [None]
  - BRONCHOPNEUMONIA [None]
  - CARDIAC ARREST [None]
  - CARDIAC HYPERTROPHY [None]
  - CARDIOPULMONARY FAILURE [None]
  - CATHETER RELATED COMPLICATION [None]
  - CIRCULATORY COLLAPSE [None]
  - DRUG TOXICITY [None]
  - GENERAL PHYSICAL HEALTH DETERIORATION [None]
  - HAEMODIALYSIS [None]
  - HAEMORRHAGE [None]
  - HEPATIC STEATOSIS [None]
  - ILL-DEFINED DISORDER [None]
  - INTERNATIONAL NORMALISED RATIO INCREASED [None]
  - IRRITABILITY [None]
  - KIDNEY FIBROSIS [None]
  - KUSSMAUL RESPIRATION [None]
  - LACTIC ACIDOSIS [None]
  - LIPOMATOSIS [None]
  - MARROW HYPERPLASIA [None]
  - METABOLIC ACIDOSIS [None]
  - MULTI-ORGAN FAILURE [None]
  - MYOCARDIAL FIBROSIS [None]
  - MYOCARDIAL INFARCTION [None]
  - MYOCARDIAL ISCHAEMIA [None]
  - NEPHRITIS [None]
  - NERVOUS SYSTEM DISORDER [None]
  - PANCYTOPENIA [None]
  - RENAL INFARCT [None]
  - RENAL NECROSIS [None]
  - RESPIRATORY ARREST [None]
  - RESTLESSNESS [None]
  - TACHYPNOEA [None]
